FAERS Safety Report 16042837 (Version 1)
Quarter: 2019Q2

REPORT INFORMATION
  Report Type: Spontaneous
  Country: US (occurrence: US)
  Receive Date: 20190306
  Receipt Date: 20190306
  Transmission Date: 20190711
  Serious: Yes (Disabling)
  Sender: FDA-Public Use
  Company Number: None

PATIENT
  Age: 54 Year
  Sex: Female
  Weight: 87.75 kg

DRUGS (3)
  1. ATENALOL 50MG ONCE A DAY [Concomitant]
  2. LEVAQUIN [Suspect]
     Active Substance: LEVOFLOXACIN
     Indication: SINUSITIS
     Dosage: ?          QUANTITY:1 TABLET(S);?
     Route: 048
     Dates: start: 20190130, end: 20190204
  3. GABAPENTIN 300MG 2X A DAY [Concomitant]

REACTIONS (6)
  - Pain [None]
  - Pain in extremity [None]
  - Arthralgia [None]
  - Tendon pain [None]
  - Joint swelling [None]
  - Hypokinesia [None]

NARRATIVE: CASE EVENT DATE: 20190204
